FAERS Safety Report 9202776 (Version 1)
Quarter: 2013Q2

REPORT INFORMATION
  Report Type: Spontaneous
  Country: US (occurrence: US)
  Receive Date: 20130401
  Receipt Date: 20130401
  Transmission Date: 20140414
  Serious: Yes (Death)
  Sender: FDA-Public Use
  Company Number: US-WATSON-2013-05506

PATIENT
  Sex: Female

DRUGS (3)
  1. PROPOXYPHENE HYDROCHLORIDE/ACETAMINOPHEN 65/650 (WATSON LABORATORIES) [Suspect]
     Indication: PAIN MANAGEMENT
     Dosage: UNK, UNKNOWN
     Route: 048
     Dates: start: 2006, end: 2008
  2. DARVOCET /00220901/ [Suspect]
     Indication: PAIN MANAGEMENT
     Dosage: UNK, UNKNOWN
     Route: 048
     Dates: start: 2006, end: 2008
  3. DARVON /00018802/ [Suspect]
     Indication: PAIN MANAGEMENT
     Dosage: UNK, UNKNOWN
     Route: 048
     Dates: start: 2006, end: 2008

REACTIONS (2)
  - Atrial fibrillation [Fatal]
  - Cardiac failure [Fatal]
